FAERS Safety Report 22080711 (Version 1)
Quarter: 2023Q1

REPORT INFORMATION
  Report Type: Spontaneous
  Country: SK (occurrence: SK)
  Receive Date: 20230309
  Receipt Date: 20230309
  Transmission Date: 20230418
  Serious: Yes (Other)
  Sender: FDA-Public Use
  Company Number: SK-SA-2023SA053184

PATIENT
  Age: 62 Year
  Sex: Male

DRUGS (7)
  1. CLOPIDOGREL [Interacting]
     Active Substance: CLOPIDOGREL BISULFATE
     Indication: Coronary artery disease
     Dosage: UNK
     Route: 065
  2. CLOPIDOGREL [Interacting]
     Active Substance: CLOPIDOGREL BISULFATE
     Indication: Acute coronary syndrome
  3. OMEPRAZOLE [Interacting]
     Active Substance: OMEPRAZOLE
     Indication: Gastric disorder
     Dosage: 20 MILLIGRAM, BID (20 MG 2X DAILY)
     Route: 065
  4. ASPIRIN [Suspect]
     Active Substance: ASPIRIN
     Indication: Product used for unknown indication
     Dosage: 100 MILLIGRAM
     Route: 065
  5. ATORVASTATIN [Suspect]
     Active Substance: ATORVASTATIN
     Indication: Product used for unknown indication
     Dosage: 80 MILLIGRAM
     Route: 065
  6. BISOPROLOL [Suspect]
     Active Substance: BISOPROLOL
     Indication: Hypertension
     Dosage: 5 MILLIGRAM
     Route: 065
  7. RAMIPRIL [Suspect]
     Active Substance: RAMIPRIL
     Indication: Hypertension
     Dosage: 5 MILLIGRAM
     Route: 065

REACTIONS (3)
  - Gastritis erosive [Unknown]
  - Dyspepsia [Unknown]
  - Drug interaction [Unknown]
